FAERS Safety Report 20247405 (Version 1)
Quarter: 2021Q4

REPORT INFORMATION
  Report Type: Spontaneous
  Country: US (occurrence: None)
  Receive Date: 20211228
  Receipt Date: 20211228
  Transmission Date: 20220303
  Serious: Yes (Other)
  Sender: FDA-Public Use
  Company Number: None

PATIENT
  Age: 71 Year
  Sex: Female
  Weight: 59.0 kg

DRUGS (1)
  1. HIZENTRA [Suspect]
     Active Substance: HUMAN IMMUNOGLOBULIN G
     Indication: Immunodeficiency common variable
     Dosage: FREQUENCY : WEEKLY;?
     Route: 058
     Dates: start: 20161201

REACTIONS (7)
  - Product quality issue [None]
  - Urticaria [None]
  - Pain [None]
  - Pruritus [None]
  - Injection site swelling [None]
  - Headache [None]
  - Nausea [None]

NARRATIVE: CASE EVENT DATE: 20211031
